FAERS Safety Report 18104385 (Version 1)
Quarter: 2020Q3

REPORT INFORMATION
  Report Type: Spontaneous
  Country: US (occurrence: US)
  Receive Date: 20200803
  Receipt Date: 20200803
  Transmission Date: 20201103
  Serious: No
  Sender: FDA-Public Use
  Company Number: None

PATIENT
  Age: 30 Year
  Sex: Male
  Weight: 93.15 kg

DRUGS (2)
  1. NORVASC [Concomitant]
     Active Substance: AMLODIPINE BESYLATE
     Dates: start: 20130624
  2. NEXLETOL [Suspect]
     Active Substance: BEMPEDOIC ACID
     Indication: DYSLIPIDAEMIA
     Route: 048
     Dates: start: 20200727, end: 20200730

REACTIONS (2)
  - Pharyngeal swelling [None]
  - Oropharyngeal pain [None]

NARRATIVE: CASE EVENT DATE: 20200728
